FAERS Safety Report 9508736 (Version 2)
Quarter: 2013Q3

REPORT INFORMATION
  Report Type: Spontaneous
  Country: US (occurrence: US)
  Receive Date: 20130909
  Receipt Date: 20130919
  Transmission Date: 20140515
  Serious: Yes (Death, Life-Threatening, Hospitalization, Disabling, Other)
  Sender: FDA-Public Use
  Company Number: US-009507513-1309USA000265

PATIENT
  Age: 78 Year
  Sex: Male

DRUGS (6)
  1. TEMODAR [Suspect]
     Indication: GLIOBLASTOMA
     Dosage: 140 MG, ONCE DAILY
     Route: 048
     Dates: start: 20130822
  2. ANTINEOPLASTIC (UNSPECIFIED) [Concomitant]
     Indication: GLIOBLASTOMA
     Dosage: UNK
     Dates: start: 20130820
  3. METFORMIN [Concomitant]
  4. ATORVASTATIN [Concomitant]
  5. TAMSULOSIN HYDROCHLORIDE [Concomitant]
  6. FLUCONAZOLE [Concomitant]

REACTIONS (1)
  - Glioblastoma [Fatal]
